FAERS Safety Report 19520376 (Version 1)
Quarter: 2021Q3

REPORT INFORMATION
  Report Type: Other
  Country: US (occurrence: US)
  Receive Date: 20210712
  Receipt Date: 20210712
  Transmission Date: 20211014
  Serious: Yes (Other)
  Sender: FDA-Public Use
  Company Number: US-ROCHE-2864776

PATIENT

DRUGS (1)
  1. BEVACIZUMAB. [Suspect]
     Active Substance: BEVACIZUMAB
     Indication: CERVIX CARCINOMA
     Route: 065

REACTIONS (4)
  - Fistula [Unknown]
  - Toxicity to various agents [Unknown]
  - Perforation [Unknown]
  - Haemorrhage [Unknown]
